FAERS Safety Report 16941864 (Version 4)
Quarter: 2021Q2

REPORT INFORMATION
  Report Type: Spontaneous
  Country: ES (occurrence: ES)
  Receive Date: 20191021
  Receipt Date: 20210520
  Transmission Date: 20210716
  Serious: Yes (Other)
  Sender: FDA-Public Use
  Company Number: NVSC2019ES009441

PATIENT
  Age: 54 Year
  Sex: Female

DRUGS (2)
  1. IBUPROFEN. [Suspect]
     Active Substance: IBUPROFEN
     Indication: PRODUCT USED FOR UNKNOWN INDICATION
     Dosage: UNK
     Route: 065
  2. IBUPROFEN. [Suspect]
     Active Substance: IBUPROFEN
     Dosage: 1 DF, Q12H
     Route: 065

REACTIONS (8)
  - Necrotising fasciitis [Unknown]
  - Angioedema [Recovered/Resolved]
  - Condition aggravated [Unknown]
  - Purulent discharge [Unknown]
  - Angioedema [Recovering/Resolving]
  - Skin plaque [Unknown]
  - Dermatitis atopic [Unknown]
  - Erythema [Unknown]
